FAERS Safety Report 20418552 (Version 1)
Quarter: 2022Q1

REPORT INFORMATION
  Report Type: Spontaneous
  Country: IN (occurrence: IN)
  Receive Date: 20220202
  Receipt Date: 20220202
  Transmission Date: 20220423
  Serious: Yes (Other)
  Sender: FDA-Public Use
  Company Number: IN-ANIPHARMA-2022-IN-000015

PATIENT
  Age: 53 Year
  Sex: Male

DRUGS (14)
  1. SULFAMETHOXAZOLE\TRIMETHOPRIM [Suspect]
     Active Substance: SULFAMETHOXAZOLE\TRIMETHOPRIM
     Indication: Bacterial infection
  2. MEROPENEM [Concomitant]
     Active Substance: MEROPENEM
  3. VORICONAZOLE [Concomitant]
     Active Substance: VORICONAZOLE
  4. CASPOFUNGIN [Concomitant]
     Active Substance: CASPOFUNGIN
  5. SILODOSIN [Concomitant]
     Active Substance: SILODOSIN
  6. VASOPRESSIN [Concomitant]
     Active Substance: VASOPRESSIN
  7. NOREPINEPHRINE [Suspect]
     Active Substance: NOREPINEPHRINE
     Indication: Product used for unknown indication
  8. ALBUTEROL [Suspect]
     Active Substance: ALBUTEROL
     Indication: Product used for unknown indication
  9. GLYCOPYRROLATE [Suspect]
     Active Substance: GLYCOPYRROLATE
     Indication: Product used for unknown indication
  10. DEXAMETHASONE [Suspect]
     Active Substance: DEXAMETHASONE
     Indication: Product used for unknown indication
     Route: 042
  11. PREDNISOLONE [Suspect]
     Active Substance: PREDNISOLONE
     Indication: Product used for unknown indication
  12. REMDESIVIR [Concomitant]
     Active Substance: REMDESIVIR
  13. ENOXAPARIN [Concomitant]
     Active Substance: ENOXAPARIN
  14. LEVOFLOXACIN [Concomitant]
     Active Substance: LEVOFLOXACIN

REACTIONS (1)
  - Angle closure glaucoma [Not Recovered/Not Resolved]
